FAERS Safety Report 4659198-2 (Version None)
Quarter: 2005Q2

REPORT INFORMATION
  Report Type: 
  Country: None (occurrence: None)
  Receive Date: 20050510
  Receipt Date: 20050430
  Transmission Date: 20051028
  Serious: Yes (Hospitalization)
  Sender: FDA-Public Use
  Company Number: 163-20785-05010067

PATIENT
  Age: 66 Year
  Sex: Male

DRUGS (28)
  1. THALOMID [Suspect]
     Indication: MULTIPLE MYELOMA
     Dosage: SEE IMAGE
     Route: 048
     Dates: start: 20040810, end: 20040903
  2. THALOMID [Suspect]
     Indication: MULTIPLE MYELOMA
     Dosage: SEE IMAGE
     Route: 048
     Dates: start: 20040906, end: 20040909
  3. BORTEZOMIB (BORTEZOMIB) [Suspect]
     Indication: MULTIPLE MYELOMA
     Dosage: 1.9 MG, DAILY, INTRAVENOUS
     Route: 042
     Dates: start: 20040903, end: 20040903
  4. BORTEZOMIB (BORTEZOMIB) [Suspect]
     Indication: MULTIPLE MYELOMA
     Dosage: 1.9 MG, DAILY, INTRAVENOUS
     Route: 042
     Dates: start: 20040906, end: 20040906
  5. BORTEZOMIB (BORTEZOMIB) [Suspect]
     Indication: MULTIPLE MYELOMA
     Dosage: 1.9 MG, DAILY, INTRAVENOUS
     Route: 042
     Dates: start: 20040910, end: 20040910
  6. BORTEZOMIB (BORTEZOMIB) [Suspect]
     Indication: MULTIPLE MYELOMA
     Dosage: 1.9 MG, DAILY, INTRAVENOUS
     Route: 042
     Dates: start: 20040913, end: 20040913
  7. BORTEZOMIB (BORTEZOMIB) [Suspect]
     Indication: MULTIPLE MYELOMA
     Dosage: 1.9 MG, DAILY, INTRAVENOUS
     Route: 042
     Dates: start: 20040721
  8. DEXAMETHASONE [Suspect]
     Indication: MULTIPLE MYELOMA
     Dosage: SEE IMAGE
     Route: 048
     Dates: start: 20040812, end: 20040815
  9. DEXAMETHASONE [Suspect]
     Indication: MULTIPLE MYELOMA
     Dosage: SEE IMAGE
     Route: 048
     Dates: start: 20040906, end: 20040909
  10. CISPLATIN [Suspect]
     Indication: MULTIPLE MYELOMA
     Dosage: 19 MG, DAILY, INTRAVENOUS
     Route: 042
     Dates: start: 20040906, end: 20040909
  11. CISPLATIN [Suspect]
     Indication: MULTIPLE MYELOMA
     Dosage: 19 MG, DAILY, INTRAVENOUS
     Route: 042
     Dates: start: 20040721
  12. ADRIAMYCIN PFS [Suspect]
     Indication: MULTIPLE MYELOMA
     Dosage: 19 MG, DAILY, INTRAVENOUS
     Route: 042
     Dates: start: 20040906, end: 20040909
  13. ADRIAMYCIN PFS [Suspect]
     Indication: MULTIPLE MYELOMA
     Dosage: 19 MG, DAILY, INTRAVENOUS
     Route: 042
     Dates: start: 20040721
  14. CYCLOPHOSPHAMIDE [Suspect]
     Indication: MULTIPLE MYELOMA
     Dosage: 764 MG, DAILY, INTRAVENOUS
     Route: 042
     Dates: start: 20040906, end: 20040909
  15. CYCLOPHOSPHAMIDE [Suspect]
     Indication: MULTIPLE MYELOMA
     Dosage: 764 MG, DAILY, INTRAVENOUS
     Route: 042
     Dates: start: 20040721
  16. ETOPOSIDE [Suspect]
     Indication: MULTIPLE MYELOMA
     Dosage: 76 MG, DAILY, INTRAVENOUS
     Route: 042
     Dates: start: 20040906, end: 20040909
  17. ETOPOSIDE [Suspect]
     Indication: MULTIPLE MYELOMA
     Dosage: 76 MG, DAILY, INTRAVENOUS
     Route: 042
     Dates: start: 20040721
  18. FOLIC ACID [Concomitant]
  19. OXYCODONE (OXYCODONE) [Concomitant]
  20. DOXYCYCLINE (DOCYCYCLINE) [Concomitant]
  21. MULTIVITAMINS (MULTIVITAMINS) (TABLETS) [Concomitant]
  22. VANCOMYCIN [Concomitant]
  23. CEFEPIME (CEFEPIME) [Concomitant]
  24. K-DUR 10 [Concomitant]
  25. ZOMETA [Concomitant]
  26. LISINOPRIL (LISINOPIRL) [Concomitant]
  27. PROCRIT [Concomitant]
  28. HEPARIN FLUSH              (HEPARIN SODIUM) [Concomitant]

REACTIONS (21)
  - ANAEMIA [None]
  - ASTHENIA [None]
  - AUTONOMIC NERVOUS SYSTEM IMBALANCE [None]
  - BACTERAEMIA [None]
  - BLOOD CREATININE INCREASED [None]
  - CATHETER RELATED COMPLICATION [None]
  - CENTRAL LINE INFECTION [None]
  - CITROBACTER INFECTION [None]
  - CSF PROTEIN INCREASED [None]
  - DIFFICULTY IN WALKING [None]
  - FAILURE TO THRIVE [None]
  - FALL [None]
  - HYPERHIDROSIS [None]
  - HYPOAESTHESIA [None]
  - NEUROPATHY [None]
  - ORTHOSTATIC HYPOTENSION [None]
  - PALLOR [None]
  - PLEURAL FIBROSIS [None]
  - RENAL CYST [None]
  - STAPHYLOCOCCAL BACTERAEMIA [None]
  - THROMBOCYTOPENIA [None]
